FAERS Safety Report 6212805-5 (Version None)
Quarter: 2009Q2

REPORT INFORMATION
  Report Type: 
  Country: None (occurrence: None)
  Receive Date: 20090601
  Receipt Date: 20090523
  Transmission Date: 20091009
  Serious: Yes (Other)
  Sender: FDA-Public Use
  Company Number: CHPA2009US12170

PATIENT
  Age: 32 Year
  Sex: Female
  Weight: 96.6 kg

DRUGS (1)
  1. THERAFLU NIGHTTIME SEVERE COLD + COUGH (NCH)(PARACETAMOL, DIPHENHYDRAM [Suspect]
     Indication: NASOPHARYNGITIS
     Dosage: 1 DF, QD, ORAL
     Route: 048
     Dates: start: 20090518, end: 20090521

REACTIONS (1)
  - AGEUSIA [None]
